FAERS Safety Report 19308530 (Version 2)
Quarter: 2023Q1

REPORT INFORMATION
  Report Type: Spontaneous
  Country: GB (occurrence: GB)
  Receive Date: 20210526
  Receipt Date: 20230127
  Transmission Date: 20230418
  Serious: Yes (Disabling)
  Sender: FDA-Public Use
  Company Number: None

PATIENT
  Age: 24 Year
  Sex: Male

DRUGS (1)
  1. MIRTAZAPINE [Suspect]
     Active Substance: MIRTAZAPINE
     Indication: Antidepressant therapy
     Dosage: UNK
     Dates: start: 2014, end: 2015

REACTIONS (7)
  - Confusional state [Unknown]
  - Nightmare [Unknown]
  - Aggression [Unknown]
  - Libido decreased [Unknown]
  - Intrusive thoughts [Unknown]
  - Weight increased [Unknown]
  - Breathing-related sleep disorder [Unknown]
